FAERS Safety Report 6590009-4 (Version None)
Quarter: 2010Q1

REPORT INFORMATION
  Report Type: 
  Country: None (occurrence: None)
  Receive Date: 20100219
  Receipt Date: 20100209
  Transmission Date: 20100710
  Serious: Yes (Other)
  Sender: FDA-Public Use
  Company Number: PHHY2010BR07262

PATIENT
  Age: 61 Year
  Sex: Male
  Weight: 158 kg

DRUGS (6)
  1. DIOVAN [Suspect]
     Indication: HYPERTENSION
     Dosage: 1 DF (320), DAILY
     Route: 048
  2. NAPRIX [Concomitant]
     Indication: HYPERTENSION
     Dosage: 1 TABLET DAILY
     Route: 048
  3. NATRILIX - SLOW RELEASE [Concomitant]
     Indication: HYPERTENSION
     Dosage: 1 TABLET DAILY
     Route: 048
  4. AAS [Concomitant]
     Dosage: UNK
     Route: 048
  5. GALVUS [Concomitant]
     Indication: DIABETES MELLITUS
     Dosage: 1 DF, BID(1 IN MORNING AND 1 IN THE NIGHT)
     Route: 048
  6. AMIODARONE HCL [Concomitant]
     Indication: ARRHYTHMIA
     Dosage: 1 TABLET AT NIGHT
     Route: 048
     Dates: start: 20090201

REACTIONS (2)
  - BLOOD PRESSURE INCREASED [None]
  - NERVOUSNESS [None]
